FAERS Safety Report 8798083 (Version 1)
Quarter: 2012Q4

REPORT INFORMATION
  Report Type: Report from Study
  Country: US (occurrence: US)
  Receive Date: 20120920
  Receipt Date: 20120920
  Transmission Date: 20130627
  Serious: Yes (Other)
  Sender: FDA-Public Use
  Company Number: US-US-EMD SERONO, INC.-7161185

PATIENT
  Sex: Female

DRUGS (1)
  1. REBIF [Suspect]
     Indication: MULTIPLE SCLEROSIS
     Route: 058
     Dates: start: 20070212

REACTIONS (4)
  - Intestinal prolapse [Recovering/Resolving]
  - Rectal prolapse [Recovering/Resolving]
  - Bladder prolapse [Recovering/Resolving]
  - Injection site pain [Unknown]
